FAERS Safety Report 8799217 (Version 1)
Quarter: 2012Q4

REPORT INFORMATION
  Report Type: Spontaneous
  Country: US (occurrence: None)
  Receive Date: 20120918
  Receipt Date: 20120918
  Transmission Date: 20130627
  Serious: Yes (Other)
  Sender: FDA-Public Use
  Company Number: None

PATIENT
  Age: 22 Year
  Sex: Female

DRUGS (3)
  1. SERTRALINE [Suspect]
     Indication: MAJOR DEPRESSION
     Dosage: 50 - 100mg daily po
12/20/2011 - 8/20/12;   8/31/12 to Present but tapering off
     Route: 048
     Dates: start: 20111220, end: 20120820
  2. SERTRALINE [Suspect]
     Indication: MAJOR DEPRESSION
     Dosage: 50 - 100mg daily PO
12/20/2011 - 8/20/12;   8/31/12 to present but tapering off
     Route: 048
     Dates: start: 20120831
  3. ESCITALOPRAM [Suspect]
     Dosage: 10mg daily po
     Route: 048
     Dates: start: 20120813, end: 20120831

REACTIONS (1)
  - Movement disorder [None]
